FAERS Safety Report 7624191-4 (Version None)
Quarter: 2011Q3

REPORT INFORMATION
  Report Type: 
  Country: None (occurrence: None)
  Receive Date: 20110720
  Receipt Date: 20110720
  Transmission Date: 20111222
  Serious: No
  Sender: FDA-Public Use
  Company Number: None

PATIENT

DRUGS (1)
  1. CORTAID COOLING SPRAY [Suspect]
     Indication: RASH
     Dosage: SPRAY

REACTIONS (2)
  - APPLICATION SITE PAIN [None]
  - RASH [None]
